FAERS Safety Report 11824084 (Version 2)
Quarter: 2015Q4

REPORT INFORMATION
  Report Type: Spontaneous
  Country: DE (occurrence: DE)
  Receive Date: 20151210
  Receipt Date: 20151223
  Transmission Date: 20160305
  Serious: Yes (Other)
  Sender: FDA-Public Use
  Company Number: DE-TEVA-615418GER

PATIENT
  Age: 76 Year
  Sex: Male

DRUGS (1)
  1. OXCARBAZEPIN-RATIOPHARM 600 MG FILMTABLETTEN [Suspect]
     Active Substance: OXCARBAZEPINE
     Indication: EPILEPSY
     Dosage: 1200 MILLIGRAM DAILY;

REACTIONS (2)
  - Somnolence [Unknown]
  - Atrial fibrillation [Unknown]

NARRATIVE: CASE EVENT DATE: 2015
